FAERS Safety Report 7068521-3 (Version None)
Quarter: 2010Q4

REPORT INFORMATION
  Report Type: 
  Country: None (occurrence: None)
  Receive Date: 20101028
  Receipt Date: 20101021
  Transmission Date: 20110411
  Serious: Yes (Hospitalization)
  Sender: FDA-Public Use
  Company Number: US-GILEAD-2010-0032809

PATIENT
  Age: 80 Year
  Sex: Female
  Weight: 90.8 kg

DRUGS (30)
  1. LETAIRIS [Suspect]
     Indication: PULMONARY ARTERIAL HYPERTENSION
     Route: 048
     Dates: start: 20090927
  2. OXYGEN [Concomitant]
  3. ASPIRIN [Concomitant]
  4. LASIX [Concomitant]
  5. METOLAZONE [Concomitant]
  6. ATENOLOL [Concomitant]
  7. ALDACTONE [Concomitant]
  8. FLUTICASONE PROPIONATE [Concomitant]
  9. TRAMADOL HCL [Concomitant]
  10. ARICEPT [Concomitant]
  11. ALLOPURINOL [Concomitant]
  12. LOVAZA [Concomitant]
  13. FISH OIL [Concomitant]
  14. HUMAOLG 100 UNITS/ML [Concomitant]
  15. DIAZEPAM [Concomitant]
  16. CLONIDINE [Concomitant]
  17. EFFEXOR XR [Concomitant]
  18. AMBIEN [Concomitant]
  19. REGLAN [Concomitant]
  20. GLIPIZIDE [Concomitant]
  21. MIRTAZAPINE [Concomitant]
  22. LIPITOR [Concomitant]
  23. LANTUS [Concomitant]
  24. GABAPENTIN [Concomitant]
  25. NEXIUM [Concomitant]
  26. BETAMETHASONE [Concomitant]
  27. CLOTRIMAZOLE [Concomitant]
  28. IPRATROPIUM BROMIDE [Concomitant]
  29. ZETIA [Concomitant]
  30. MULTI-VITAMIN [Concomitant]

REACTIONS (1)
  - PNEUMONIA [None]
